FAERS Safety Report 5932025-9 (Version None)
Quarter: 2008Q4

REPORT INFORMATION
  Report Type: 
  Country: None (occurrence: None)
  Receive Date: 20081027
  Receipt Date: 20081023
  Transmission Date: 20090506
  Serious: Yes (Other)
  Sender: FDA-Public Use
  Company Number: US-B.I. PHARMACEUTICALS,INC./RIDGEFIELD-2008-BP-16227BP

PATIENT
  Sex: Male

DRUGS (2)
  1. CLONIDINE HCL [Suspect]
     Indication: SLEEP DISORDER
     Dosage: .15MG
     Route: 048
     Dates: start: 20081003, end: 20081022
  2. RITALIN [Concomitant]
     Indication: ATTENTION DEFICIT/HYPERACTIVITY DISORDER

REACTIONS (8)
  - BLOOD PRESSURE DECREASED [None]
  - DEHYDRATION [None]
  - HEART RATE DECREASED [None]
  - LETHARGY [None]
  - MEDICATION ERROR [None]
  - PALLOR [None]
  - SLEEP DISORDER [None]
  - SOMNOLENCE [None]
